FAERS Safety Report 20590244 (Version 1)
Quarter: 2022Q1

REPORT INFORMATION
  Report Type: Spontaneous
  Country: US (occurrence: None)
  Receive Date: 20220313
  Receipt Date: 20220313
  Transmission Date: 20220423
  Serious: No
  Sender: FDA-Public Use
  Company Number: None

PATIENT
  Age: 36 Year
  Sex: Female
  Weight: 99 kg

DRUGS (13)
  1. IPRATROPIUM [Suspect]
     Active Substance: IPRATROPIUM
     Indication: Hypersensitivity
     Dosage: OTHER QUANTITY : 30 SPRAY(S);?FREQUENCY : AS NEEDED;?
     Route: 045
     Dates: start: 20220310, end: 20220313
  2. IPRATROPIUM [Suspect]
     Active Substance: IPRATROPIUM
     Indication: Sinusitis
  3. CARNITOR [Concomitant]
     Active Substance: LEVOCARNITINE
  4. VITAMINS [Concomitant]
     Active Substance: VITAMINS
  5. PROZAC [Concomitant]
     Active Substance: FLUOXETINE HYDROCHLORIDE
  6. VITAMIN B [Concomitant]
     Active Substance: VITAMIN B
  7. VITAMIN D [Concomitant]
     Active Substance: VITAMIN D NOS
  8. VITAMIN E [Concomitant]
     Active Substance: .ALPHA.-TOCOPHEROL
  9. IRON [Concomitant]
     Active Substance: IRON
  10. mucus relief (OTC) [Concomitant]
  11. PREDNISONE [Concomitant]
     Active Substance: PREDNISONE
  12. FLAGYL [Concomitant]
     Active Substance: METRONIDAZOLE\METRONIDAZOLE HYDROCHLORIDE
  13. IPRATROPIUM [Concomitant]
     Active Substance: IPRATROPIUM

REACTIONS (3)
  - Headache [None]
  - Nasopharyngitis [None]
  - Abdominal pain upper [None]

NARRATIVE: CASE EVENT DATE: 20220310
